FAERS Safety Report 8199834-X (Version None)
Quarter: 2012Q1

REPORT INFORMATION
  Report Type: 
  Country: None (occurrence: None)
  Receive Date: 20120312
  Receipt Date: 20120222
  Transmission Date: 20120608
  Serious: No
  Sender: FDA-Public Use
  Company Number: US-BIOGENIDEC-2012BI008442

PATIENT
  Age: 74 Year
  Sex: Male

DRUGS (9)
  1. BACLOFEN [Concomitant]
  2. CELEXA [Concomitant]
  3. MULTI-VITAMIN [Concomitant]
  4. AMPYRA [Concomitant]
     Indication: GAIT DISTURBANCE
     Route: 048
  5. HYDROCHLOROTHIAZIDE [Concomitant]
  6. AVONEX [Suspect]
     Indication: MULTIPLE SCLEROSIS
     Route: 030
     Dates: start: 20020101
  7. LOTREL [Concomitant]
  8. PREVACID [Concomitant]
  9. CALCIUM CARBONATE [Concomitant]

REACTIONS (1)
  - BALANCE DISORDER [None]
